FAERS Safety Report 8143385 (Version 5)
Quarter: 2024Q2

REPORT INFORMATION
  Report Type: Report from Study
  Country: FR (occurrence: FR)
  Receive Date: 20110920
  Receipt Date: 20240625
  Transmission Date: 20240716
  Serious: Yes (Hospitalization)
  Sender: FDA-Public Use
  Company Number: FR-JNJFOC-20110904375

PATIENT
  Age: 14 Year
  Sex: Female
  Weight: 40.6 kg

DRUGS (6)
  1. REMICADE [Suspect]
     Active Substance: INFLIXIMAB
     Indication: Crohn^s disease
     Route: 041
     Dates: start: 20090123, end: 20110225
  2. REMICADE [Suspect]
     Active Substance: INFLIXIMAB
     Route: 041
     Dates: start: 20110401, end: 20150415
  3. REMICADE [Suspect]
     Active Substance: INFLIXIMAB
     Route: 041
     Dates: start: 20150511, end: 20150812
  4. REMICADE [Suspect]
     Active Substance: INFLIXIMAB
     Route: 041
     Dates: start: 20090123, end: 20150908
  5. PREDNISONE [Concomitant]
     Active Substance: PREDNISONE
  6. AZATHIOPRINE [Concomitant]
     Active Substance: AZATHIOPRINE

REACTIONS (3)
  - Anal fissure [Recovered/Resolved]
  - Rectal discharge [Unknown]
  - Scoliosis [Unknown]

NARRATIVE: CASE EVENT DATE: 20110316
